FAERS Safety Report 9967218 (Version 2)
Quarter: 2014Q1

REPORT INFORMATION
  Report Type: Report from Study
  Country: US (occurrence: US)
  Receive Date: 20140305
  Receipt Date: 20140305
  Transmission Date: 20141002
  Serious: No
  Sender: FDA-Public Use
  Company Number: US-ABBVIE-13P-163-1088348-00

PATIENT
  Age: 36 Year
  Sex: Male
  Weight: 68.55 kg

DRUGS (2)
  1. HUMIRA [Suspect]
     Indication: PSORIATIC ARTHROPATHY
     Dates: start: 2009
  2. SUBUTEX [Concomitant]
     Indication: PRODUCT USED FOR UNKNOWN INDICATION

REACTIONS (4)
  - Tuberculin test positive [Unknown]
  - Herpes zoster [Recovered/Resolved]
  - Drug ineffective [Unknown]
  - Psoriasis [Unknown]
